FAERS Safety Report 8455600-9 (Version None)
Quarter: 2012Q2

REPORT INFORMATION
  Report Type: 
  Country: None (occurrence: None)
  Receive Date: 20120621
  Receipt Date: 20120618
  Transmission Date: 20120825
  Serious: No
  Sender: FDA-Public Use
  Company Number: US-BAYER-2012-060847

PATIENT
  Age: 79 Year
  Sex: Male
  Weight: 72 kg

DRUGS (5)
  1. ALEVE (CAPLET) [Suspect]
     Indication: ARTHRITIS
     Dosage: 2 DF, QD
     Route: 048
  2. ASPIRIN [Concomitant]
     Indication: ISCHAEMIC HEART DISEASE PROPHYLAXIS
     Dosage: UNK
     Route: 048
  3. MEDICATION FOR EYES [Concomitant]
  4. MEDICATION FOR DIZZINESS [Concomitant]
  5. CALCIUM [Concomitant]

REACTIONS (1)
  - PAIN [None]
